FAERS Safety Report 10097976 (Version 3)
Quarter: 2014Q2

REPORT INFORMATION
  Report Type: Report from Study
  Country: US (occurrence: US)
  Receive Date: 20140423
  Receipt Date: 20140626
  Transmission Date: 20141212
  Serious: Yes (Hospitalization, Other)
  Sender: FDA-Public Use
  Company Number: US-BRISTOL-MYERS SQUIBB COMPANY-20555561

PATIENT
  Age: 58 Year
  Sex: Female
  Weight: 99.4 kg

DRUGS (1)
  1. IPILIMUMAB [Suspect]
     Indication: MALIGNANT MELANOMA
     Dosage: OVER 90 MINS, Q 12 WEEKS ON WEEKS 24, 36, 48, + 60?994MG-20FEB14
     Route: 042
     Dates: start: 20140130

REACTIONS (3)
  - Enterocolitis [Recovering/Resolving]
  - Large intestinal ulcer [Recovering/Resolving]
  - Gastritis [Recovering/Resolving]
